FAERS Safety Report 15934569 (Version 5)
Quarter: 2019Q2

REPORT INFORMATION
  Report Type: Report from Study
  Country: US (occurrence: US)
  Receive Date: 20190207
  Receipt Date: 20190403
  Transmission Date: 20190711
  Serious: Yes (Hospitalization)
  Sender: FDA-Public Use
  Company Number: US-VIFOR (INTERNATIONAL) INC.-VIT-2019-00956

PATIENT
  Age: 71 Year
  Sex: Male
  Weight: 92.16 kg

DRUGS (17)
  1. ISONIAZID. [Concomitant]
     Active Substance: ISONIAZID
     Dates: start: 20170726
  2. SIMBRINZA [Concomitant]
     Active Substance: BRIMONIDINE TARTRATE\BRINZOLAMIDE
     Dosage: 1-0.2 %
     Dates: start: 20170726
  3. ATORVASTATIN [Concomitant]
     Active Substance: ATORVASTATIN
     Dates: start: 20170726
  4. GLIMEPIRIDE. [Concomitant]
     Active Substance: GLIMEPIRIDE
     Dates: start: 20170726
  5. MAGNESIUM [Concomitant]
     Active Substance: MAGNESIUM
     Dates: start: 20170726
  6. VITAMIN D3 [Concomitant]
     Active Substance: CHOLECALCIFEROL
     Dates: start: 20170726
  7. CALCITRIOL. [Concomitant]
     Active Substance: CALCITRIOL
     Dates: start: 20170726
  8. FERROUS SULFATE. [Concomitant]
     Active Substance: FERROUS SULFATE
     Dosage: 300/5 ML
     Dates: start: 20170726
  9. LATANOPROST. [Concomitant]
     Active Substance: LATANOPROST
     Dates: start: 20170726
  10. PYRIDOXINE [Concomitant]
     Active Substance: PYRIDOXINE
     Dates: start: 20170726
  11. LOSARTAN. [Concomitant]
     Active Substance: LOSARTAN
     Dates: end: 201901
  12. VELTASSA [Suspect]
     Active Substance: PATIROMER
     Indication: HYPERKALAEMIA
     Route: 048
     Dates: start: 20170728, end: 201901
  13. VELTASSA [Suspect]
     Active Substance: PATIROMER
     Dates: start: 2019
  14. PREDNISOLONE. [Concomitant]
     Active Substance: PREDNISOLONE
     Route: 047
     Dates: start: 20170726
  15. AMLODIPINE [Concomitant]
     Active Substance: AMLODIPINE BESYLATE
     Dates: start: 20170726
  16. LABETALOL [Concomitant]
     Active Substance: LABETALOL\LABETALOL HYDROCHLORIDE
     Dates: start: 20170726
  17. TORSEMIDE. [Concomitant]
     Active Substance: TORSEMIDE
     Dates: start: 20170726

REACTIONS (12)
  - Feeding disorder [Unknown]
  - Jaundice [Unknown]
  - Failure to thrive [Unknown]
  - Duodenal ulcer [Unknown]
  - Blood loss anaemia [Unknown]
  - Malaise [Unknown]
  - Gastritis [Unknown]
  - Blood potassium decreased [Not Recovered/Not Resolved]
  - Malnutrition [Unknown]
  - Blood glucose decreased [Unknown]
  - Accelerated hypertension [Unknown]
  - Pancreatic mass [Unknown]

NARRATIVE: CASE EVENT DATE: 201901
